FAERS Safety Report 4729871-6 (Version None)
Quarter: 2005Q3

REPORT INFORMATION
  Report Type: 
  Country: None (occurrence: None)
  Receive Date: 20050801
  Receipt Date: 20040802
  Transmission Date: 20060218
  Serious: Yes (Hospitalization)
  Sender: FDA-Public Use
  Company Number: US-BRISTOL-MYERS SQUIBB COMPANY-12657920

PATIENT

DRUGS (1)
  1. CEENU [Suspect]

REACTIONS (1)
  - INCORRECT DOSE ADMINISTERED [None]
